FAERS Safety Report 12878536 (Version 4)
Quarter: 2017Q2

REPORT INFORMATION
  Report Type: Other
  Country: US (occurrence: US)
  Receive Date: 20161024
  Receipt Date: 20170428
  Transmission Date: 20170830
  Serious: Yes (Congenital Anomaly, Other)
  Sender: FDA-Public Use
  Company Number: US-KADMON PHARMACEUTICALS, LLC-KAD201610-003799

PATIENT
  Age: 1 Year
  Sex: Male
  Weight: 11.53 kg

DRUGS (31)
  1. DTAP/IPV/HIB (0.5 ML) [Concomitant]
     Route: 030
     Dates: start: 20151130
  2. ACETAMINOPHEN. [Concomitant]
     Active Substance: ACETAMINOPHEN
     Route: 048
     Dates: start: 20151012
  3. CHILDREN^S MOTRIN 100 MG/5ML [Concomitant]
     Indication: PAIN
     Dosage: SUSPENSION
     Route: 048
  4. TYLENOL 160 MG/5 ML (120 ML) [Concomitant]
     Indication: PAIN
     Dosage: ELIXIR; 1.25 ML EVERY 4 HR AS NECESSARY FOR 7 DAY
     Route: 048
  5. SIMETHICONE (HM GAS RELIEF INFANTS DROPS) [Concomitant]
     Route: 048
  6. VITAMIN K [Concomitant]
     Active Substance: PHYTONADIONE
  7. SOVALDI [Suspect]
     Active Substance: SOFOSBUVIR
  8. CHILDREN^S MOTRIN 100 MG/5ML [Concomitant]
     Indication: PYREXIA
     Dosage: SUSPENSION
     Route: 048
     Dates: start: 20160529
  9. TYLENOL 160 MG/5 ML (120 ML) [Concomitant]
     Dosage: SOLUTION
     Route: 048
     Dates: start: 20160406
  10. ZANTAC 15 MG/ML SYRUP [Concomitant]
     Route: 048
  11. PCV13 [Concomitant]
     Active Substance: PNEUMOCOCCAL 13-VALENT CONJUGATE VACCINE
     Route: 030
     Dates: start: 20151130
  12. ROTAVIRUS 2 ML [Concomitant]
     Route: 048
     Dates: start: 20151130
  13. ROTAVIRUS 2 ML [Concomitant]
     Route: 048
     Dates: start: 20160318
  14. HEPATITIS B VACCINE [Concomitant]
     Active Substance: HEPATITIS B VIRUS VACCINE
     Route: 030
     Dates: start: 20150928
  15. DECADRON 5.9 MG INJECTION [Concomitant]
     Dates: start: 20160623
  16. MYCOSTATIN 100,000 UNITS/G CREAM [Concomitant]
     Dosage: APPLIED SMALL AMOUNT OVER AFFECTED DIAPER AREA FOUR TIMES A DAY APPLIED SMALL AMOUNT OVER AFFECTED D
  17. AMOXICILLIN 250 MG/5 ML SUSPENSION [Concomitant]
     Route: 048
     Dates: start: 20160529, end: 20160608
  18. PEGINTRON [Suspect]
     Active Substance: PEGINTERFERON ALFA-2B
  19. PCV13 [Concomitant]
     Active Substance: PNEUMOCOCCAL 13-VALENT CONJUGATE VACCINE
     Route: 030
     Dates: start: 20160318
  20. AMOXICILLIN 400 MG/5 ML [Concomitant]
     Dosage: SUSPENSION
     Route: 048
  21. HEPATITIS B VACCINE [Concomitant]
     Active Substance: HEPATITIS B VIRUS VACCINE
     Route: 030
     Dates: start: 20151130
  22. TYLENOL 160 MG/5 ML (120 ML) [Concomitant]
     Indication: PYREXIA
     Dosage: SUSPENSION
     Route: 048
     Dates: start: 20160529
  23. ROCEPHIN 350 MG INJECTION [Concomitant]
     Route: 030
     Dates: start: 20160406
  24. RIBASPHERE RIBAPAK [Suspect]
     Active Substance: RIBAVIRIN
  25. TRI-VI-SOL (MULTIVITAMIN) 750-400-35 UNIT-MG/ML SOL [Concomitant]
     Route: 048
  26. ACETAMINOPHEN. [Concomitant]
     Active Substance: ACETAMINOPHEN
     Indication: PYREXIA
  27. IBUPROFEN. [Concomitant]
     Active Substance: IBUPROFEN
     Route: 048
  28. DTAP/IPV/HIB (0.5 ML) [Concomitant]
     Route: 030
     Dates: start: 20160318
  29. HYTONE 1% CREAM 30 G [Concomitant]
     Dosage: ONE APPLICATION TO AFFECTED AREA
  30. LURIDE  1.1 (0.5 F) MG/ML (50 ML) [Concomitant]
     Route: 048
  31. CHILDREN^S MOTRIN 100 MG/5ML [Concomitant]
     Dates: start: 20160406

REACTIONS (85)
  - Constipation [Unknown]
  - Otitis media acute [Unknown]
  - Ear discomfort [Unknown]
  - Upper respiratory tract infection [Unknown]
  - Pyrexia [Unknown]
  - Rhinorrhoea [Unknown]
  - Pyrexia [Unknown]
  - Rhinorrhoea [Unknown]
  - Sneezing [Unknown]
  - Teething [Unknown]
  - Rhinorrhoea [Unknown]
  - Pyrexia [Unknown]
  - Swollen tongue [Unknown]
  - Pyrexia [Unknown]
  - Ventricular septal defect [Recovered/Resolved]
  - Viral infection [Unknown]
  - Pharyngeal erythema [Unknown]
  - Wheezing [Unknown]
  - Croup infectious [Unknown]
  - Atrial septal defect [Recovered/Resolved]
  - Jaundice neonatal [Unknown]
  - Infection [Unknown]
  - Cough [Unknown]
  - Rhinorrhoea [Unknown]
  - Eye discharge [Unknown]
  - Constipation [Unknown]
  - Lymphadenopathy [Unknown]
  - Restlessness [Unknown]
  - Eating disorder [Unknown]
  - Dyspnoea [Unknown]
  - Teething [Unknown]
  - Ear discomfort [Unknown]
  - Foetal exposure during pregnancy [Unknown]
  - Weight gain poor [Unknown]
  - Nasal congestion [Unknown]
  - Restlessness [Unknown]
  - Lung infiltration [Unknown]
  - Otitis media acute [Unknown]
  - Decreased activity [Unknown]
  - Drooling [Unknown]
  - Pyrexia [Unknown]
  - Cough [Unknown]
  - Stridor [Unknown]
  - Dermatitis diaper [Unknown]
  - Somnolence [Unknown]
  - Decreased appetite [Unknown]
  - Tongue disorder [Unknown]
  - Upper respiratory tract infection [Unknown]
  - Ear discomfort [Unknown]
  - Cough [Unknown]
  - Decreased activity [Unknown]
  - Pyrexia [Unknown]
  - Vomiting [Unknown]
  - Pyrexia [Unknown]
  - Dermatitis diaper [Unknown]
  - Physical examination abnormal [Unknown]
  - Tympanic membrane hyperaemia [Unknown]
  - Decreased appetite [Unknown]
  - Abdominal pain [Unknown]
  - Aorta hypoplasia [Unknown]
  - Gastrooesophageal reflux disease [Unknown]
  - Insomnia [Unknown]
  - Weight decreased [Unknown]
  - Nasal congestion [Unknown]
  - Nasal congestion [Unknown]
  - Cough [Unknown]
  - Gastrooesophageal reflux disease [Unknown]
  - Teething [Unknown]
  - Erythema [Unknown]
  - Ear infection [Unknown]
  - Chest X-ray abnormal [Unknown]
  - Upper respiratory tract infection [Unknown]
  - Tympanic membrane hyperaemia [Unknown]
  - Flushing [Unknown]
  - Conjunctivitis viral [Unknown]
  - Candida nappy rash [Unknown]
  - Drooling [Unknown]
  - Ear pain [Unknown]
  - Ear discomfort [Unknown]
  - Tympanic membrane hyperaemia [Unknown]
  - Vomiting [Unknown]
  - Teething [Unknown]
  - Eating disorder [Unknown]
  - Diarrhoea [Unknown]
  - Dysphonia [Unknown]

NARRATIVE: CASE EVENT DATE: 20150529
